FAERS Safety Report 4577555-X (Version None)
Quarter: 2005Q1

REPORT INFORMATION
  Report Type: 
  Country: None (occurrence: None)
  Receive Date: 20050208
  Receipt Date: 20050128
  Transmission Date: 20050727
  Serious: Yes (Disabling)
  Sender: FDA-Public Use
  Company Number: 2005021108

PATIENT
  Age: 86 Year
  Sex: Male

DRUGS (5)
  1. ESTRAMUSTINE PHOSPHATE SODIUM CAPSULE (ESTRAMUSTINE PHOSPHATE SODIUM) [Suspect]
     Indication: PROSTATE CANCER
     Dosage: 280 MG , ORAL
     Route: 048
     Dates: start: 20041015, end: 20041101
  2. EVIPROSTAT (CHIMAPHILIA UMBELLATA, EQUISETUM ARVENSE, MANGANESE CHLORI [Concomitant]
  3. BICALUTAMIDE (BICALUTAMIDE0 [Concomitant]
  4. TAMSULOSIN HYDROCHLORIDE (TAMSULOSIN HYDROCHLORIDE) [Concomitant]
  5. LEUPRORELIN ACETATE (LEUPRORELIN ACETATE) [Concomitant]

REACTIONS (6)
  - CEREBRAL INFARCTION [None]
  - FALL [None]
  - HEMIPLEGIA [None]
  - MALAISE [None]
  - PALPITATIONS [None]
  - PARALYSIS [None]
